FAERS Safety Report 8882957 (Version 2)
Quarter: 2012Q4

REPORT INFORMATION
  Report Type: 
  Country: US (occurrence: US)
  Receive Date: 20121102
  Receipt Date: 20121221
  Transmission Date: 20130627
  Serious: No
  Sender: FDA-Public Use
  Company Number: US-ASTRAZENECA-2011SE72457

PATIENT
  Age: 77 Year
  Sex: Female

DRUGS (1)
  1. CRESTOR [Suspect]
     Route: 048

REACTIONS (5)
  - Vertigo [Unknown]
  - Malaise [Unknown]
  - Confusional state [Unknown]
  - Headache [Unknown]
  - Depression [Unknown]
